FAERS Safety Report 14282327 (Version 2)
Quarter: 2018Q1

REPORT INFORMATION
  Report Type: Report from Study
  Country: CL (occurrence: CL)
  Receive Date: 20171213
  Receipt Date: 20180209
  Transmission Date: 20180508
  Serious: Yes (Other)
  Sender: FDA-Public Use
  Company Number: CL-UCBSA-2017049571

PATIENT
  Age: 36 Year
  Sex: Male

DRUGS (8)
  1. SALBUTAMOL [Concomitant]
     Active Substance: ALBUTEROL
     Indication: ASTHMA
     Dosage: 2 PUFF SOS
  2. VALPROIC ACID. [Concomitant]
     Active Substance: VALPROIC ACID
     Indication: EPILEPSY
     Dosage: 500 MG, 3X/DAY (TID)
     Route: 048
  3. LAMOTRIGINE. [Concomitant]
     Active Substance: LAMOTRIGINE
     Indication: EPILEPSY
     Dosage: 75 MG, 2X/DAY (BID)
     Route: 048
     Dates: start: 20171113
  4. ATORVASTATIN [Concomitant]
     Active Substance: ATORVASTATIN
     Indication: DYSLIPIDAEMIA
     Dosage: 40 MG DAILY
     Route: 048
  5. SALBUTAMOL W/BECLOMETASONE DIPROPIONATE [Concomitant]
     Indication: ASTHMA
     Dosage: 2 PUFF, 2X/DAY (BID)
  6. GRIFOCLOBAM [Concomitant]
     Indication: EPILEPSY
     Dosage: 10 MG, 2X/DAY (BID)
     Route: 048
  7. LACOSAMIDE. [Suspect]
     Active Substance: LACOSAMIDE
     Indication: EPILEPSY
     Dosage: 100 MG, 2X/DAY (BID)
     Route: 048
     Dates: start: 20171113
  8. ZOPICLONE [Concomitant]
     Active Substance: ZOPICLONE
     Indication: INSOMNIA
     Dosage: 3 MG 2/3 TABLET
     Route: 048

REACTIONS (3)
  - Choking [Unknown]
  - Chest pain [Recovered/Resolved]
  - Anxiety [Unknown]

NARRATIVE: CASE EVENT DATE: 2017
